FAERS Safety Report 14728241 (Version 1)
Quarter: 2018Q2

REPORT INFORMATION
  Report Type: Report from Study
  Country: TR (occurrence: TR)
  Receive Date: 20180406
  Receipt Date: 20180406
  Transmission Date: 20180711
  Serious: Yes (Other)
  Sender: FDA-Public Use
  Company Number: TR-TEVA-2018-TR-877300

PATIENT
  Age: 36 Year
  Sex: Female

DRUGS (4)
  1. PARACETAMOL [Suspect]
     Active Substance: ACETAMINOPHEN
  2. ERGOTAMINE TARTRATE. [Suspect]
     Active Substance: ERGOTAMINE TARTRATE
     Indication: SUICIDE ATTEMPT
     Dosage: 20DOSES OF 0.75/350MG
     Route: 065
  3. DEXKETOPROFEN [Suspect]
     Active Substance: DEXKETOPROFEN
     Indication: SUICIDE ATTEMPT
     Dosage: 20DOSES OF 25MG
     Route: 065
  4. AMOXICILLIN/CLAVULANATE [Suspect]
     Active Substance: AMOXICILLIN\CLAVULANATE POTASSIUM
     Indication: SUICIDE ATTEMPT
     Dosage: 20DOSES OF 875/125MG
     Route: 065

REACTIONS (5)
  - Suicide attempt [Unknown]
  - Vaginal haemorrhage [Unknown]
  - Maternal exposure during pregnancy [Unknown]
  - Intentional overdose [Unknown]
  - Abortion spontaneous [Unknown]
